FAERS Safety Report 4922344-7 (Version None)
Quarter: 2006Q1

REPORT INFORMATION
  Report Type: 
  Country: None (occurrence: None)
  Receive Date: 20060224
  Receipt Date: 20051020
  Transmission Date: 20060701
  Serious: Yes (Hospitalization, Other)
  Sender: FDA-Public Use
  Company Number: US-MERCK-0510USA08167

PATIENT
  Age: 53 Year
  Sex: Female
  Weight: 57 kg

DRUGS (4)
  1. VIOXX [Suspect]
     Indication: HYPOAESTHESIA
     Route: 048
     Dates: start: 20000401, end: 20030401
  2. VIOXX [Suspect]
     Route: 048
     Dates: start: 20000401, end: 20030401
  3. VIOXX [Suspect]
     Route: 048
     Dates: start: 20000401, end: 20030401
  4. VIOXX [Suspect]
     Route: 048
     Dates: start: 20000401, end: 20030401

REACTIONS (6)
  - ARTERIAL GRAFT [None]
  - BRACHYTHERAPY [None]
  - CARDIOVASCULAR DISORDER [None]
  - CARDIOVASCULAR INSUFFICIENCY [None]
  - COLOSTOMY [None]
  - THROMBOSIS [None]
